FAERS Safety Report 9702330 (Version 2)
Quarter: 2013Q4

REPORT INFORMATION
  Report Type: Spontaneous
  Country: US (occurrence: US)
  Receive Date: 20131121
  Receipt Date: 20131203
  Transmission Date: 20140711
  Serious: No
  Sender: FDA-Public Use
  Company Number: US-009507513-1311USA008585

PATIENT
  Sex: Male
  Weight: 88.44 kg

DRUGS (2)
  1. ZEGERID OTC CAPSULES [Suspect]
     Indication: DYSPEPSIA
     Dosage: UNK, UNKNOWN
     Route: 048
     Dates: start: 20131014, end: 20131101
  2. VICODIN [Concomitant]
     Indication: PRURITUS
     Dosage: UNK, UNKNOWN
     Route: 048

REACTIONS (1)
  - Drug ineffective [Unknown]
